FAERS Safety Report 24145832 (Version 1)
Quarter: 2024Q3

REPORT INFORMATION
  Report Type: Report from Study
  Country: US (occurrence: US)
  Receive Date: 20240729
  Receipt Date: 20240729
  Transmission Date: 20241017
  Serious: Yes (Hospitalization, Other)
  Sender: ABBVIE
  Company Number: US-ABBVIE-5850366

PATIENT
  Sex: Female
  Weight: 40.823 kg

DRUGS (5)
  1. HUMIRA [Suspect]
     Active Substance: ADALIMUMAB
     Indication: Crohn^s disease
     Dosage: FORM STRENGTH:40 MG
     Route: 058
     Dates: start: 202304
  2. ONFI [Concomitant]
     Active Substance: CLOBAZAM
     Indication: Seizure prophylaxis
  3. DIAZEPAM [Concomitant]
     Active Substance: DIAZEPAM
     Indication: General symptom
  4. VIMPAT [Concomitant]
     Active Substance: LACOSAMIDE
     Indication: Seizure prophylaxis
  5. KEPPRA [Concomitant]
     Active Substance: LEVETIRACETAM
     Indication: Seizure prophylaxis

REACTIONS (8)
  - Vomiting [Recovered/Resolved]
  - Post procedural complication [Recovered/Resolved]
  - Vomiting [Unknown]
  - Gastric dilatation [Recovered/Resolved]
  - Scar [Unknown]
  - Gastric dilatation [Recovered/Resolved]
  - Vomiting [Recovered/Resolved]
  - Post procedural complication [Recovered/Resolved]

NARRATIVE: CASE EVENT DATE: 20240101
